FAERS Safety Report 10428757 (Version 2)
Quarter: 2015Q2

REPORT INFORMATION
  Report Type: Spontaneous
  Country: US (occurrence: US)
  Receive Date: 20140903
  Receipt Date: 20150626
  Transmission Date: 20150821
  Serious: Yes (Other)
  Sender: FDA-Public Use
  Company Number: US-UCBSA-2014010407

PATIENT
  Age: 53 Year
  Sex: Female

DRUGS (1)
  1. CIMZIA [Suspect]
     Active Substance: CERTOLIZUMAB PEGOL
     Indication: RHEUMATOID ARTHRITIS
     Dosage: 400 MG, EV 4 WEEKS ; STRENGHT: 200 MG
     Route: 058
     Dates: start: 20131101, end: 20140806

REACTIONS (2)
  - Pustular psoriasis [Unknown]
  - Alopecia [Unknown]

NARRATIVE: CASE EVENT DATE: 20131201
